FAERS Safety Report 17959464 (Version 1)
Quarter: 2020Q2

REPORT INFORMATION
  Report Type: Spontaneous
  Country: CA (occurrence: CA)
  Receive Date: 20200629
  Receipt Date: 20200629
  Transmission Date: 20200714
  Serious: Yes (Other)
  Sender: FDA-Public Use
  Company Number: CA-SA-2020SA161549

PATIENT

DRUGS (3)
  1. SULFASALAZINE. [Suspect]
     Active Substance: SULFASALAZINE
     Dosage: 2 DF(500 EACH), BID
     Route: 065
     Dates: start: 202001
  2. PREDNISONE. [Suspect]
     Active Substance: PREDNISONE
     Dosage: TAPERING DOSE
     Route: 065
     Dates: start: 202001
  3. LEFLUNOMIDE. [Suspect]
     Active Substance: LEFLUNOMIDE
     Dosage: 20 MG, QD
     Route: 065
     Dates: start: 202001

REACTIONS (4)
  - Peripheral swelling [Unknown]
  - Loss of personal independence in daily activities [Unknown]
  - Joint swelling [Unknown]
  - Drug ineffective [Unknown]
